FAERS Safety Report 19608273 (Version 1)
Quarter: 2021Q3

REPORT INFORMATION
  Report Type: Spontaneous
  Country: US (occurrence: US)
  Receive Date: 20210723
  Receipt Date: 20210723
  Transmission Date: 20211014
  Serious: No
  Sender: FDA-Public Use
  Company Number: None

PATIENT
  Age: 67 Year
  Sex: Female

DRUGS (10)
  1. AMITRIPTYLINE [Concomitant]
     Active Substance: AMITRIPTYLINE
  2. VTIAMIN E 400 IU CAPSULE [Concomitant]
  3. OXYCODONE [Concomitant]
     Active Substance: OXYCODONE
  4. CARVEDILOL. [Concomitant]
     Active Substance: CARVEDILOL
  5. MOTRIN [Concomitant]
     Active Substance: IBUPROFEN
  6. SUPER OMEGA?3 CAPSULE [Concomitant]
  7. MELATONIN [Concomitant]
     Active Substance: MELATONIN
  8. JUXTAPID [Suspect]
     Active Substance: LOMITAPIDE MESYLATE
     Indication: TYPE IIA HYPERLIPIDAEMIA
     Route: 048
  9. SINGULAIR [Concomitant]
     Active Substance: MONTELUKAST SODIUM
  10. TRIAMTERENE AND HYDROCHLOROTHIAZIDE [Concomitant]
     Active Substance: HYDROCHLOROTHIAZIDE\TRIAMTERENE

REACTIONS (3)
  - Abdominal discomfort [None]
  - Loss of personal independence in daily activities [None]
  - Nausea [None]
